FAERS Safety Report 10230404 (Version 2)
Quarter: 2014Q2

REPORT INFORMATION
  Report Type: Spontaneous
  Country: US (occurrence: US)
  Receive Date: 20140611
  Receipt Date: 20140617
  Transmission Date: 20141212
  Serious: Yes (Other)
  Sender: FDA-Public Use
  Company Number: US-SA-2014SA076414

PATIENT
  Age: 60 Year
  Sex: Male

DRUGS (17)
  1. STILNOX [Suspect]
     Indication: DEPRESSION
     Route: 048
     Dates: start: 20131215, end: 20140210
  2. STILNOX [Interacting]
     Indication: DEPRESSION
     Route: 048
     Dates: start: 20131215, end: 20140210
  3. STILNOX [Interacting]
     Indication: INSOMNIA
     Route: 048
     Dates: start: 20131215, end: 20140210
  4. VENLAFAXINE HYDROCHLORIDE [Interacting]
     Indication: DEPRESSION
     Route: 048
     Dates: start: 20131215, end: 2014
  5. VENLAFAXINE HYDROCHLORIDE [Interacting]
     Indication: DEPRESSION
     Route: 048
     Dates: start: 20131215, end: 2014
  6. VENLAFAXINE HYDROCHLORIDE [Interacting]
     Indication: INSOMNIA
     Route: 048
     Dates: start: 20131215, end: 2014
  7. VENLAFAXINE HYDROCHLORIDE [Interacting]
     Indication: DEPRESSION
     Route: 048
     Dates: start: 2014
  8. VENLAFAXINE HYDROCHLORIDE [Interacting]
     Indication: DEPRESSION
     Route: 048
     Dates: start: 2014
  9. VENLAFAXINE HYDROCHLORIDE [Interacting]
     Indication: INSOMNIA
     Route: 048
     Dates: start: 2014
  10. VIREAD [Suspect]
     Indication: CHRONIC HEPATITIS B
     Route: 048
     Dates: start: 200906, end: 2014
  11. VIREAD [Suspect]
     Indication: CHRONIC HEPATITIS B
     Route: 048
     Dates: start: 2014
  12. DAPAROX [Interacting]
     Indication: DEPRESSION
     Route: 048
     Dates: start: 20131215, end: 2014
  13. DAPAROX [Interacting]
     Indication: DEPRESSION
     Route: 048
     Dates: start: 20131215, end: 2014
  14. DAPAROX [Interacting]
     Indication: INSOMNIA
     Route: 048
     Dates: start: 20131215, end: 2014
  15. DAPAROX [Interacting]
     Indication: DEPRESSION
     Route: 048
     Dates: start: 2014
  16. DAPAROX [Interacting]
     Indication: DEPRESSION
     Route: 048
     Dates: start: 2014
  17. DAPAROX [Interacting]
     Indication: INSOMNIA
     Route: 048
     Dates: start: 2014

REACTIONS (5)
  - Hepatocellular injury [Recovering/Resolving]
  - Hepatitis B [Recovering/Resolving]
  - Drug interaction [Unknown]
  - Drug ineffective [Unknown]
  - Intentional product misuse [Unknown]
